FAERS Safety Report 8997900 (Version 1)
Quarter: 2013Q1

REPORT INFORMATION
  Report Type: Spontaneous
  Country: IT (occurrence: IT)
  Receive Date: 20130104
  Receipt Date: 20130104
  Transmission Date: 20140127
  Serious: Yes (Hospitalization)
  Sender: FDA-Public Use
  Company Number: IT-ASTRAZENECA-2012SE96444

PATIENT
  Age: 32218 Day
  Sex: Male

DRUGS (4)
  1. SEROQUEL [Suspect]
     Route: 048
     Dates: start: 20121206, end: 20121206
  2. SERENASE (ALOPERIDOL) [Suspect]
     Route: 048
     Dates: start: 20111206, end: 20121206
  3. DEPAMIDE (VALPROMIDE) [Suspect]
     Route: 048
     Dates: start: 20111206, end: 20121206
  4. OMEPRAZOLE [Concomitant]
     Dates: start: 20111206, end: 20121206

REACTIONS (1)
  - Epilepsy [Unknown]
